FAERS Safety Report 7942067-X (Version None)
Quarter: 2011Q4

REPORT INFORMATION
  Report Type: 
  Country: None (occurrence: None)
  Receive Date: 20111128
  Receipt Date: 20111128
  Transmission Date: 20120403
  Serious: Yes (Life-Threatening, Hospitalization)
  Sender: FDA-Public Use
  Company Number: None

PATIENT
  Age: 45 Year
  Sex: Female
  Weight: 61.234 kg

DRUGS (2)
  1. KLONOPIN [Suspect]
     Indication: ANXIETY
     Dosage: 1MG
     Dates: start: 19910901, end: 20090921
  2. KLONOPIN [Suspect]
     Indication: TIC
     Dosage: 1MG
     Dates: start: 19910901, end: 20090921

REACTIONS (7)
  - INJURY [None]
  - LOSS OF EMPLOYMENT [None]
  - NERVOUS SYSTEM DISORDER [None]
  - DRUG TOLERANCE [None]
  - MENTAL IMPAIRMENT [None]
  - DRUG WITHDRAWAL SYNDROME [None]
  - THINKING ABNORMAL [None]
